FAERS Safety Report 6847310-6 (Version None)
Quarter: 2010Q3

REPORT INFORMATION
  Report Type: 
  Country: None (occurrence: None)
  Receive Date: 20100716
  Receipt Date: 20100706
  Transmission Date: 20110219
  Serious: Yes (Other)
  Sender: FDA-Public Use
  Company Number: US-JNJFOC-20100500703

PATIENT
  Age: 61 Year
  Sex: Female
  Weight: 86.64 kg

DRUGS (2)
  1. REMICADE [Suspect]
     Indication: CROHN'S DISEASE
     Dosage: 39 INFUSIONS
     Route: 042
  2. REMICADE [Suspect]
     Route: 042

REACTIONS (1)
  - BASAL CELL CARCINOMA [None]
